FAERS Safety Report 9547149 (Version 1)
Quarter: 2013Q2

REPORT INFORMATION
  Report Type: Spontaneous
  Country: US (occurrence: None)
  Receive Date: 20130606
  Receipt Date: 20130606
  Transmission Date: 20140414
  Serious: No
  Sender: FDA-Public Use
  Company Number: 2013PROUSA02557

PATIENT
  Age: 67 Year
  Sex: Male
  Weight: 88 kg

DRUGS (13)
  1. PROVENGE (SIPULEUCEL-T) SUSPENSION, 250ML [Suspect]
     Indication: PROSTATE CANCER METASTATIC
     Dosage: 250 ML, SINGLE, INTRAVENOUS
     Route: 042
     Dates: start: 20130131, end: 20130131
  2. HEPARIN SODIUM (HEPARIN SODIUM) [Suspect]
  3. ASPIRIN (ACETYLSALICYLIC ACID) [Concomitant]
  4. FISH OIL (FISH OIL) [Concomitant]
  5. LANTUS (INSULIN GLARGINE) [Concomitant]
  6. LISINOPRIL (LISINOPRIL) [Concomitant]
  7. METFORMIN HCL (METFORMIN HYDROCHLORIDE) [Concomitant]
  8. OMEPRAZOLE (OMEPRAZOLE) [Concomitant]
  9. SIMVASTATINK (SIMVASTATIN) [Concomitant]
  10. ZOLPIDEM (ZOLPIDEM TARTRATE) [Concomitant]
  11. VITAMIN D3 (COLECALCIFEROL) [Concomitant]
  12. COENZYME Q10 (UBIDECARENONE) [Concomitant]
  13. OCUVITE (ASCORBIC ACID, BETACAROLENE, CUPRIC OXIDE, SODIUM SELENATE, TOCOPHERYL ACETATE, ZINC OXIDE) [Concomitant]

REACTIONS (2)
  - Thrombosis in device [None]
  - Incorrect dose administered [None]
